FAERS Safety Report 13704546 (Version 3)
Quarter: 2017Q3

REPORT INFORMATION
  Report Type: Spontaneous
  Country: DE (occurrence: DE)
  Receive Date: 20170630
  Receipt Date: 20170718
  Transmission Date: 20171127
  Serious: Yes (Hospitalization)
  Sender: FDA-Public Use
  Company Number: DE-ROCHE-1957254

PATIENT
  Age: 53 Year
  Sex: Female
  Weight: 116 kg

DRUGS (2)
  1. HERCEPTIN [Suspect]
     Active Substance: TRASTUZUMAB
     Dosage: DOSE RECEIVED ON MAY/2015
     Route: 042
  2. HERCEPTIN [Suspect]
     Active Substance: TRASTUZUMAB
     Indication: BREAST CANCER FEMALE
     Route: 042
     Dates: start: 20170214, end: 20170607

REACTIONS (5)
  - Pulmonary embolism [Recovering/Resolving]
  - Dyspnoea at rest [Recovering/Resolving]
  - Tachycardia [Recovering/Resolving]
  - Deep vein thrombosis [Recovering/Resolving]
  - Malaise [Recovering/Resolving]

NARRATIVE: CASE EVENT DATE: 20170607
